FAERS Safety Report 4552494-9 (Version None)
Quarter: 2005Q1

REPORT INFORMATION
  Report Type: 
  Country: None (occurrence: None)
  Receive Date: 20050112
  Receipt Date: 20041227
  Transmission Date: 20050727
  Serious: Yes (Hospitalization)
  Sender: FDA-Public Use
  Company Number: 207757

PATIENT
  Age: 62 Year
  Sex: Male

DRUGS (3)
  1. AVONEX [Suspect]
     Indication: MULTIPLE SCLEROSIS
     Dosage: 30 UG;QW; IM
     Route: 030
     Dates: start: 20011109, end: 20031101
  2. AVONEX [Suspect]
     Indication: MULTIPLE SCLEROSIS
     Dosage: 30 UG; QW; IM
     Route: 030
     Dates: start: 20031105, end: 20040417
  3. AVONEX [Suspect]
     Indication: MULTIPLE SCLEROSIS
     Dosage: 30 UG; QW; IM
     Route: 030
     Dates: start: 20040624, end: 20040701

REACTIONS (9)
  - CLOSTRIDIAL INFECTION [None]
  - DECUBITUS ULCER [None]
  - DISORIENTATION [None]
  - DYSPHAGIA [None]
  - LISTLESS [None]
  - OSTEOMYELITIS [None]
  - SPEECH DISORDER [None]
  - URINARY TRACT INFECTION STAPHYLOCOCCAL [None]
  - WOUND INFECTION STAPHYLOCOCCAL [None]
